FAERS Safety Report 16954836 (Version 2)
Quarter: 2021Q1

REPORT INFORMATION
  Report Type: Spontaneous
  Country: US (occurrence: US)
  Receive Date: 20191024
  Receipt Date: 20210119
  Transmission Date: 20210419
  Serious: Yes (Other)
  Sender: FDA-Public Use
  Company Number: US-SUN PHARMACEUTICAL INDUSTRIES LTD-2019R1-224835

PATIENT
  Age: 66 Year
  Sex: Female

DRUGS (7)
  1. FLUCONAZOLE. [Suspect]
     Active Substance: FLUCONAZOLE
     Indication: PROPHYLAXIS
     Dosage: UNK
     Route: 065
  2. MYCOPHENOLATE [Suspect]
     Active Substance: MYCOPHENOLIC ACID
     Indication: IMMUNOSUPPRESSION
     Dosage: UNK
     Route: 065
  3. PENTAMIDINE [Suspect]
     Active Substance: PENTAMIDINE
     Indication: PROPHYLAXIS
     Dosage: UNK
     Route: 065
  4. SULPHAMETHOXAZOLE/TRIMETHOPRIM [Suspect]
     Active Substance: SULFAMETHOXAZOLE\TRIMETHOPRIM
     Indication: TOXOPLASMOSIS
     Dosage: UNK
     Route: 065
  5. SULPHAMETHOXAZOLE/TRIMETHOPRIM [Suspect]
     Active Substance: SULFAMETHOXAZOLE\TRIMETHOPRIM
     Indication: PROPHYLAXIS
  6. METHYLPREDNISOLONE. [Suspect]
     Active Substance: METHYLPREDNISOLONE
     Indication: IMMUNOSUPPRESSION
     Dosage: UNK
     Route: 065
  7. VALGANCICLOVIR. [Suspect]
     Active Substance: VALGANCICLOVIR
     Indication: PROPHYLAXIS
     Dosage: UNK
     Route: 065

REACTIONS (2)
  - Drug ineffective [Unknown]
  - Toxoplasmosis [Recovered/Resolved]
